FAERS Safety Report 7385515-9 (Version None)
Quarter: 2011Q1

REPORT INFORMATION
  Report Type: 
  Country: None (occurrence: None)
  Receive Date: 20110331
  Receipt Date: 20110321
  Transmission Date: 20110831
  Serious: Yes (Death, Hospitalization)
  Sender: FDA-Public Use
  Company Number: US-BIOGENIDEC-2010BI044925

PATIENT
  Age: 68 Year
  Sex: Female
  Weight: 84 kg

DRUGS (11)
  1. WELLBUTRIN [Concomitant]
  2. SEROQUEL [Concomitant]
  3. LEXAPRO [Concomitant]
  4. GABAPENTIN [Concomitant]
  5. SYNTHROID [Concomitant]
  6. ACETAMINOPHEN [Concomitant]
  7. TYSABRI [Suspect]
     Indication: MULTIPLE SCLEROSIS
     Route: 042
     Dates: start: 20100827, end: 20100924
  8. DOCUSATE [Concomitant]
  9. BACLOFEN [Concomitant]
  10. LISINOPRIL [Concomitant]
  11. VITAMIN D [Concomitant]

REACTIONS (3)
  - RENAL FAILURE ACUTE [None]
  - FALL [None]
  - SKELETAL INJURY [None]
